FAERS Safety Report 8962131 (Version 2)
Quarter: 2013Q1

REPORT INFORMATION
  Report Type: Spontaneous
  Country: US (occurrence: US)
  Receive Date: 20121212
  Receipt Date: 20130122
  Transmission Date: 20140127
  Serious: No
  Sender: FDA-Public Use
  Company Number: US-009507513-1212USA004668

PATIENT
  Sex: Female
  Weight: 69.84 kg

DRUGS (4)
  1. CLARITIN [Suspect]
     Indication: DERMATITIS
     Dosage: UNK, ONCE
     Route: 048
  2. CLARITIN [Suspect]
     Indication: PRURITUS
  3. CLARITIN [Suspect]
     Indication: RASH
  4. CLARITIN [Suspect]
     Indication: MEDICAL OBSERVATION

REACTIONS (2)
  - Condition aggravated [Recovered/Resolved]
  - Off label use [Recovered/Resolved]
